FAERS Safety Report 6275118-1 (Version None)
Quarter: 2009Q3

REPORT INFORMATION
  Report Type: 
  Country: None (occurrence: None)
  Receive Date: 20090721
  Receipt Date: 20090709
  Transmission Date: 20100115
  Serious: Yes (Other)
  Sender: FDA-Public Use
  Company Number: PHHY2009JP28448

PATIENT
  Age: 82 Year
  Sex: Female

DRUGS (1)
  1. ZOMETA [Suspect]
     Indication: BONE LESION
     Dosage: 4 MG (PER ADMINISTRATION)
     Route: 042
     Dates: end: 20090212

REACTIONS (1)
  - OSTEONECROSIS [None]
